FAERS Safety Report 23751344 (Version 1)
Quarter: 2024Q2

REPORT INFORMATION
  Report Type: Spontaneous
  Country: US (occurrence: US)
  Receive Date: 20240417
  Receipt Date: 20240417
  Transmission Date: 20240716
  Serious: No
  Sender: FDA-Public Use
  Company Number: US-TEVA-VS-3178398

PATIENT

DRUGS (1)
  1. METHYLPHENIDATE [Suspect]
     Active Substance: METHYLPHENIDATE
     Indication: Product used for unknown indication
     Route: 048

REACTIONS (5)
  - Feeling jittery [Unknown]
  - Photophobia [Unknown]
  - Migraine [Unknown]
  - Product substitution issue [Unknown]
  - Thirst [Unknown]
